FAERS Safety Report 4355688-0 (Version None)
Quarter: 2004Q2

REPORT INFORMATION
  Report Type: 
  Country: None (occurrence: None)
  Receive Date: 20040507
  Receipt Date: 20040427
  Transmission Date: 20050107
  Serious: No
  Sender: FDA-Public Use
  Company Number: 2004UW08549

PATIENT
  Age: 31 Year
  Sex: Female

DRUGS (3)
  1. NEXIUM [Suspect]
     Dosage: 40 MG DAILY PO
     Route: 048
     Dates: start: 20040301
  2. PHENOBARBITAL TAB [Suspect]
  3. LAMICTAL [Suspect]

REACTIONS (2)
  - CONVULSION [None]
  - DRUG INTERACTION [None]
